FAERS Safety Report 18360270 (Version 4)
Quarter: 2020Q4

REPORT INFORMATION
  Report Type: Spontaneous
  Country: US (occurrence: US)
  Receive Date: 20201008
  Receipt Date: 20201110
  Transmission Date: 20210114
  Serious: No
  Sender: FDA-Public Use
  Company Number: US-PFIZER INC-2020387662

PATIENT
  Age: 63 Year
  Sex: Female

DRUGS (4)
  1. IBRANCE [Suspect]
     Active Substance: PALBOCICLIB
     Indication: SENILE OSTEOPOROSIS
     Dosage: 125 MG, CYCLIC [1 TABLET BY MOUTH FOR 21 DAYS FOLLOWD BY 7 OFF]
     Route: 048
     Dates: start: 20200507
  2. IBRANCE [Suspect]
     Active Substance: PALBOCICLIB
     Indication: NEOPLASM MALIGNANT
     Dosage: UNK
     Dates: start: 20201005
  3. IBRANCE [Suspect]
     Active Substance: PALBOCICLIB
     Indication: OSTEOPOROSIS
     Dosage: 125 MG, CYCLIC [TAKE 1 TABLET BY MOUTH DAILY FOR 21 DAYS WITH A 7 DAY BREAK]
     Route: 048
     Dates: start: 20181201
  4. IBRANCE [Suspect]
     Active Substance: PALBOCICLIB
     Indication: BRONCHIAL FISTULA

REACTIONS (4)
  - Product use in unapproved indication [Unknown]
  - Red blood cell count decreased [Not Recovered/Not Resolved]
  - White blood cell count decreased [Not Recovered/Not Resolved]
  - Off label use [Unknown]

NARRATIVE: CASE EVENT DATE: 20181201
